FAERS Safety Report 7793255-7 (Version None)
Quarter: 2011Q4

REPORT INFORMATION
  Report Type: 
  Country: None (occurrence: None)
  Receive Date: 20111003
  Receipt Date: 20110928
  Transmission Date: 20120403
  Serious: Yes (Death, Life-Threatening, Hospitalization, Other)
  Sender: FDA-Public Use
  Company Number: RO-BAYER-2011-081132

PATIENT
  Age: 38 Year
  Sex: Male
  Weight: 58 kg

DRUGS (5)
  1. SORAFENIB (RAF KINASE INHIBITOR) [Suspect]
     Indication: HEPATIC NEOPLASM MALIGNANT
     Dosage: 400 MG, BID
     Route: 048
     Dates: start: 20110623, end: 20110811
  2. SILYBUM MARIANUM [Concomitant]
     Indication: HEPATIC CIRRHOSIS
     Dosage: 150 MG, BID
     Dates: start: 20070101
  3. SPIRONOLACTONE [Concomitant]
     Indication: HEPATIC CIRRHOSIS
     Dosage: 100 MG, QD
     Dates: start: 20070101
  4. PREDNISONE ACETATE [Concomitant]
     Indication: HYPERBILIRUBINAEMIA
     Dosage: 5 MG, TID
     Dates: start: 20110812, end: 20110816
  5. URSODIOL [Concomitant]
     Indication: HEPATIC CIRRHOSIS
     Dosage: 500 MG, BID
     Dates: start: 20110101

REACTIONS (5)
  - HEPATIC FAILURE [None]
  - HAEMOLYSIS [None]
  - GENERAL PHYSICAL HEALTH DETERIORATION [None]
  - CHOLESTASIS [None]
  - ELECTROCARDIOGRAM QT PROLONGED [None]
